FAERS Safety Report 18954431 (Version 1)
Quarter: 2021Q1

REPORT INFORMATION
  Report Type: Spontaneous
  Country: US (occurrence: US)
  Receive Date: 20210301
  Receipt Date: 20210301
  Transmission Date: 20210420
  Serious: No
  Sender: FDA-Public Use
  Company Number: US-TEVA-2021-US-1881300

PATIENT
  Age: 42 Year
  Sex: Female

DRUGS (1)
  1. LIDOCAINE. [Suspect]
     Active Substance: LIDOCAINE
     Indication: ARTHRALGIA
     Route: 062

REACTIONS (4)
  - Drug ineffective [Unknown]
  - Psychiatric symptom [Unknown]
  - Bursitis [Unknown]
  - Periarthritis [Unknown]
